FAERS Safety Report 7776916-5 (Version None)
Quarter: 2011Q3

REPORT INFORMATION
  Report Type: 
  Country: None (occurrence: None)
  Receive Date: 20110926
  Receipt Date: 20110916
  Transmission Date: 20111222
  Serious: Yes (Hospitalization)
  Sender: FDA-Public Use
  Company Number: US-ASTELLAS-2011US005264

PATIENT
  Age: 22 Year
  Sex: Female
  Weight: 49 kg

DRUGS (3)
  1. MYFORTIC [Concomitant]
     Indication: PRODUCT USED FOR UNKNOWN INDICATION
     Dosage: UNK
     Route: 065
  2. AMEVIVE [Suspect]
     Indication: RENAL TRANSPLANT
     Dosage: 15 MG, MONTHLY
     Route: 058
     Dates: start: 20101201, end: 20110719
  3. PROGRAF [Concomitant]
     Indication: PRODUCT USED FOR UNKNOWN INDICATION
     Dosage: UNK
     Route: 065

REACTIONS (4)
  - ANAEMIA [None]
  - URINARY TRACT INFECTION [None]
  - NEUTROPENIA [None]
  - ABDOMINAL PAIN [None]
